FAERS Safety Report 23833089 (Version 1)
Quarter: 2024Q2

REPORT INFORMATION
  Report Type: Spontaneous
  Country: GR (occurrence: GR)
  Receive Date: 20240508
  Receipt Date: 20240508
  Transmission Date: 20240716
  Serious: Yes (Death, Other)
  Sender: FDA-Public Use
  Company Number: GR-Stemline Therapeutics, Inc.-2024ST002653

PATIENT
  Sex: Male

DRUGS (1)
  1. ELZONRIS [Suspect]
     Active Substance: TAGRAXOFUSP-ERZS
     Indication: Blastic plasmacytoid dendritic cell neoplasia
     Dosage: 12MCG/KG, 3 TIMES IN A 20-DAY CYCLE
     Route: 042
     Dates: start: 202311, end: 202403

REACTIONS (2)
  - Cardiac failure [Fatal]
  - Death [Fatal]

NARRATIVE: CASE EVENT DATE: 20240423
